FAERS Safety Report 9103292 (Version 2)
Quarter: 2014Q1

REPORT INFORMATION
  Report Type: Spontaneous
  Country: US (occurrence: US)
  Receive Date: 20130219
  Receipt Date: 20140110
  Transmission Date: 20141002
  Serious: Yes (Disabling)
  Sender: FDA-Public Use
  Company Number: US-009507513-1302USA007237

PATIENT
  Sex: Male

DRUGS (3)
  1. PROPECIA [Suspect]
     Indication: ALOPECIA
     Dosage: 1 MG, UNK
     Route: 048
     Dates: start: 2000, end: 2010
  2. PROSCAR [Suspect]
     Indication: POLLAKIURIA
     Dosage: 5 MG, UNK
     Route: 048
     Dates: start: 2002, end: 2002
  3. FLOMAX (TAMSULOSIN HYDROCHLORIDE) [Concomitant]
     Indication: POLLAKIURIA
     Dosage: 0.4 MG, UNK
     Dates: start: 2002, end: 2002

REACTIONS (12)
  - Anxiety [Unknown]
  - Emotional distress [Unknown]
  - Sexual dysfunction [Unknown]
  - Orgasmic sensation decreased [Unknown]
  - Sensory loss [Unknown]
  - Hypoaesthesia [Unknown]
  - Semen analysis abnormal [Unknown]
  - Semen volume decreased [Unknown]
  - Erectile dysfunction [Unknown]
  - Ejaculation delayed [Unknown]
  - Infertility [Unknown]
  - Loss of libido [Unknown]
